FAERS Safety Report 18821985 (Version 1)
Quarter: 2021Q1

REPORT INFORMATION
  Report Type: Spontaneous
  Country: US (occurrence: US)
  Receive Date: 20210202
  Receipt Date: 20210202
  Transmission Date: 20210419
  Serious: No
  Sender: FDA-Public Use
  Company Number: US-PFIZER INC-2021062826

PATIENT
  Age: 85 Year
  Sex: Female

DRUGS (6)
  1. CLOTRIMAZOLE. [Suspect]
     Active Substance: CLOTRIMAZOLE
     Dosage: UNK
  2. TETRACYCLINE HCL [Suspect]
     Active Substance: TETRACYCLINE HYDROCHLORIDE
     Dosage: UNK
  3. CARTIA XT [Suspect]
     Active Substance: DILTIAZEM HYDROCHLORIDE
     Dosage: UNK
  4. NOROXIN [Suspect]
     Active Substance: NORFLOXACIN
     Dosage: UNK
  5. PIROXICAM. [Suspect]
     Active Substance: PIROXICAM
     Dosage: UNK
  6. FLECAINIDE [Suspect]
     Active Substance: FLECAINIDE
     Dosage: UNK

REACTIONS (2)
  - Drug hypersensitivity [Unknown]
  - Urticaria [Unknown]
